FAERS Safety Report 16213730 (Version 1)
Quarter: 2019Q2

REPORT INFORMATION
  Report Type: Spontaneous
  Country: DE (occurrence: DE)
  Receive Date: 20190418
  Receipt Date: 20190418
  Transmission Date: 20190711
  Serious: Yes (Hospitalization, Other)
  Sender: FDA-Public Use
  Company Number: DE-PFIZER INC-2019065900

PATIENT
  Sex: Female

DRUGS (10)
  1. METHOTREXATE SODIUM. [Suspect]
     Active Substance: METHOTREXATE SODIUM
     Dosage: UNK, 1X/DAY
  2. VIGANTOLETTEN [Concomitant]
     Active Substance: CHOLECALCIFEROL
     Dosage: 1-0-0-0
  3. HUMALOG [Concomitant]
     Active Substance: INSULIN LISPRO
     Dosage: 10-8-3-0
  4. OMEBETA [Concomitant]
     Dosage: 1-0-0-0
  5. LANTUS XR [Concomitant]
     Active Substance: INSULIN GLARGINE
     Dosage: 0-0-0-8
  6. FERRO DUODENAL [Concomitant]
     Dosage: 1-0-0-0
  7. DECORTIN H [Concomitant]
     Active Substance: PREDNISOLONE
     Dosage: 2-0-0-0
  8. FOLSAN [Concomitant]
     Active Substance: FOLIC ACID
     Dosage: 1-0-0-01 X / 1X WEEK
  9. L-THYROXIN [LEVOTHYROXINE SODIUM] [Concomitant]
     Dosage: 1-0-0-0
  10. CLEXANE 4.000 I. E. (40 MG)/0,4 ML [Concomitant]
     Dosage: 0-0-0-1

REACTIONS (7)
  - Mucosal inflammation [Unknown]
  - Rib fracture [Unknown]
  - Accidental overdose [Unknown]
  - Product administration error [Unknown]
  - Pancytopenia [Unknown]
  - Inappropriate schedule of product administration [Unknown]
  - Toxicity to various agents [Unknown]
